FAERS Safety Report 5823856-4 (Version None)
Quarter: 2008Q3

REPORT INFORMATION
  Report Type: 
  Country: None (occurrence: None)
  Receive Date: 20080725
  Receipt Date: 20080718
  Transmission Date: 20090109
  Serious: Yes (Other)
  Sender: FDA-Public Use
  Company Number: US-AMGEN-KDL262472

PATIENT
  Sex: Female

DRUGS (4)
  1. ENBREL [Suspect]
     Indication: RHEUMATOID ARTHRITIS
     Route: 058
     Dates: start: 19981201
  2. COZAAR [Concomitant]
  3. PROCARDIA [Concomitant]
  4. ATENOLOL [Concomitant]

REACTIONS (10)
  - ABDOMINAL PAIN LOWER [None]
  - ARTHRALGIA [None]
  - BLOOD PRESSURE INCREASED [None]
  - EYELID OEDEMA [None]
  - FATIGUE [None]
  - GROIN PAIN [None]
  - HERPES ZOSTER [None]
  - JOINT SWELLING [None]
  - OEDEMA PERIPHERAL [None]
  - THROAT TIGHTNESS [None]
